FAERS Safety Report 5653076-8 (Version None)
Quarter: 2008Q1

REPORT INFORMATION
  Report Type: 
  Country: None (occurrence: None)
  Receive Date: 20080306
  Receipt Date: 20080228
  Transmission Date: 20080703
  Serious: Yes (Other)
  Sender: FDA-Public Use
  Company Number: BR-ASTRAZENECA-2008UW04280

PATIENT
  Age: 78 Year
  Sex: Male
  Weight: 59 kg

DRUGS (7)
  1. OMEPRAZOLE [Suspect]
     Indication: GASTRITIS
     Route: 048
     Dates: start: 20050101
  2. SYMBICORT [Concomitant]
     Indication: EMPHYSEMA
     Dosage: 320/9 UG
     Route: 055
     Dates: start: 20080101
  3. ATROVENT [Concomitant]
     Indication: EMPHYSEMA
     Route: 055
     Dates: start: 20030101
  4. HYDROCHLOROTHIZIDE [Concomitant]
     Indication: HYPERTENSION
     Route: 048
     Dates: start: 20070101
  5. BESILATO DE ANLODIPINO [Concomitant]
     Indication: HYPERTENSION
     Route: 048
     Dates: start: 20030101
  6. FORASEQ [Concomitant]
     Indication: ASTHMA
     Route: 055
     Dates: start: 20030101, end: 20080101
  7. ATACAND [Concomitant]
     Indication: HYPERTENSION
     Route: 048
     Dates: start: 20070101

REACTIONS (3)
  - DYSPNOEA [None]
  - ULCER [None]
  - WEIGHT DECREASED [None]
